FAERS Safety Report 6028652-3 (Version None)
Quarter: 2009Q1

REPORT INFORMATION
  Report Type: 
  Country: None (occurrence: None)
  Receive Date: 20090102
  Receipt Date: 20081223
  Transmission Date: 20090719
  Serious: Yes (Other)
  Sender: FDA-Public Use
  Company Number: 1000003340

PATIENT
  Age: 50 Year
  Sex: Female
  Weight: 65 kg

DRUGS (4)
  1. ESCITALOPRAM [Suspect]
     Dosage: 4 TABLETS ONCE, ORAL
     Route: 048
     Dates: start: 20081223, end: 20081223
  2. CARBAMAZEPINE (400 MILLIGRAM, TABLETS) [Suspect]
     Dosage: 3200 MG, ONCE, ORAL
     Route: 048
     Dates: start: 20081223, end: 20081223
  3. DOXEPIN HCL [Suspect]
     Dosage: 100 MG, ONCE, ORAL
     Route: 048
     Dates: start: 20081223, end: 20081223
  4. ALCOHOL [Suspect]
     Dosage: 2 GLASSES OF WINE, ORAL
     Route: 048
     Dates: start: 20081223, end: 20081223

REACTIONS (4)
  - DYSARTHRIA [None]
  - ILL-DEFINED DISORDER [None]
  - INTENTIONAL OVERDOSE [None]
  - SUICIDE ATTEMPT [None]
